FAERS Safety Report 7926839-3 (Version None)
Quarter: 2011Q4

REPORT INFORMATION
  Report Type: 
  Country: None (occurrence: None)
  Receive Date: 20111118
  Receipt Date: 20111117
  Transmission Date: 20120403
  Serious: Yes (Death)
  Sender: FDA-Public Use
  Company Number: JP-PFIZER INC-2011281313

PATIENT
  Age: 81 Year
  Sex: Female

DRUGS (8)
  1. AMLODIPINE BESYLATE [Suspect]
     Dosage: 5 MG, DAILY
     Route: 048
     Dates: start: 20110915, end: 20111030
  2. URSO 250 [Suspect]
     Dosage: 300 MG, DAILY
  3. DIOVAN [Suspect]
     Dosage: 80 MG, DAILY
  4. FAMOTIDINE [Suspect]
     Dosage: 20 MG, DAILY
  5. MAGNESIUM OXIDE [Suspect]
     Dosage: 990 MG, DAILY
  6. AMLODIPINE BESYLATE [Suspect]
     Indication: ESSENTIAL HYPERTENSION
     Dosage: 10 MG, DAILY
     Route: 048
     Dates: end: 20110914
  7. AMLODIPINE BESYLATE [Suspect]
     Dosage: 10 MG, DAILY
     Route: 048
     Dates: start: 20111031
  8. ALDACTONE [Suspect]
     Dosage: 25 MG, DAILY

REACTIONS (1)
  - DEATH [None]
